FAERS Safety Report 22532831 (Version 1)
Quarter: 2023Q2

REPORT INFORMATION
  Report Type: Spontaneous
  Country: ES (occurrence: ES)
  Receive Date: 20230607
  Receipt Date: 20230607
  Transmission Date: 20230722
  Serious: Yes (Other)
  Sender: FDA-Public Use
  Company Number: ES-002147023-PHHY2019ES048723

PATIENT
  Age: 7 Year
  Sex: Female

DRUGS (3)
  1. CYCLOSPORINE [Interacting]
     Active Substance: CYCLOSPORINE
     Indication: Allogenic stem cell transplantation
     Dosage: 30 MG, Q12H
     Route: 042
     Dates: start: 20170531
  2. MYCOPHENOLATE MOFETIL [Interacting]
     Active Substance: MYCOPHENOLATE MOFETIL
     Indication: Allogenic stem cell transplantation
     Dosage: 345 MG, Q12H
     Route: 042
     Dates: start: 20170601, end: 20170712
  3. DEFIBROTIDE (BOVINE) [Interacting]
     Active Substance: DEFIBROTIDE (BOVINE)
     Indication: Venoocclusive liver disease
     Dosage: 140 MG, Q6H
     Route: 042
     Dates: start: 20170627, end: 20170705

REACTIONS (3)
  - Cystitis haemorrhagic [Recovered/Resolved]
  - Anaemia [Recovered/Resolved]
  - Thrombocytopenia [Recovered/Resolved]

NARRATIVE: CASE EVENT DATE: 20170630
